FAERS Safety Report 11863420 (Version 1)
Quarter: 2015Q4

REPORT INFORMATION
  Report Type: Spontaneous
  Country: PL (occurrence: PL)
  Receive Date: 20151223
  Receipt Date: 20151223
  Transmission Date: 20160305
  Serious: Yes (Other)
  Sender: FDA-Public Use
  Company Number: PL-ACTELION-A-CH2015-128916

PATIENT
  Age: 49 Year
  Sex: Female
  Weight: 82 kg

DRUGS (2)
  1. VELETRI [Suspect]
     Active Substance: EPOPROSTENOL
     Indication: PULMONARY ARTERIAL HYPERTENSION
     Dosage: 0.5 NG/KG, PER MIN
     Route: 042
     Dates: start: 20150819
  2. VELETRI [Suspect]
     Active Substance: EPOPROSTENOL
     Dosage: 17 NG/KG, PER MIN
     Route: 042

REACTIONS (6)
  - Joint stiffness [Unknown]
  - Headache [Unknown]
  - Vomiting [Unknown]
  - Flushing [Unknown]
  - Nausea [Unknown]
  - Diarrhoea [Unknown]

NARRATIVE: CASE EVENT DATE: 20150820
